FAERS Safety Report 6180475-0 (Version None)
Quarter: 2009Q2

REPORT INFORMATION
  Report Type: 
  Country: None (occurrence: None)
  Receive Date: 20090506
  Receipt Date: 20090427
  Transmission Date: 20091009
  Serious: Yes (Hospitalization)
  Sender: FDA-Public Use
  Company Number: PHHY2009ES15736

PATIENT
  Age: 84 Year
  Sex: Female

DRUGS (2)
  1. VOLTAREN [Suspect]
     Indication: INJURY
     Dosage: 50 MG
     Dates: start: 20080918, end: 20080926
  2. ENALAPRIL MALEATE [Concomitant]
     Indication: HYPERTENSION
     Dosage: 5 MG/DAY
     Route: 048
     Dates: start: 20080923, end: 20080926

REACTIONS (2)
  - NEPHROPATHY [None]
  - RENAL FAILURE ACUTE [None]
